FAERS Safety Report 12148023 (Version 1)
Quarter: 2016Q1

REPORT INFORMATION
  Report Type: Spontaneous
  Country: US (occurrence: US)
  Receive Date: 20160304
  Receipt Date: 20160304
  Transmission Date: 20160526
  Serious: Yes (Other)
  Sender: FDA-Public Use
  Company Number: US-ENDO PHARMACEUTICALS INC.-2016-001580

PATIENT
  Sex: Male

DRUGS (1)
  1. EDEX [Suspect]
     Active Substance: ALPROSTADIL
     Indication: PRODUCT USED FOR UNKNOWN INDICATION
     Route: 017
     Dates: start: 2011, end: 201505

REACTIONS (1)
  - Bladder cancer recurrent [Unknown]
